FAERS Safety Report 21522109 (Version 3)
Quarter: 2022Q4

REPORT INFORMATION
  Report Type: Report from Study
  Country: GB (occurrence: GB)
  Receive Date: 20221028
  Receipt Date: 20221208
  Transmission Date: 20230113
  Serious: Yes (Hospitalization, Other)
  Sender: FDA-Public Use
  Company Number: GB-BRISTOL-MYERS SQUIBB COMPANY-2022-124765

PATIENT
  Age: 61 Year
  Sex: Male
  Weight: 84.5 kg

DRUGS (27)
  1. FLUDARABINE [Concomitant]
     Active Substance: FLUDARABINE PHOSPHATE
     Indication: Marginal zone lymphoma
     Route: 042
     Dates: start: 20211210, end: 20211212
  2. CYCLOPHOSPHAMIDE [Concomitant]
     Active Substance: CYCLOPHOSPHAMIDE
     Indication: Marginal zone lymphoma
     Route: 042
     Dates: start: 20211210, end: 20211212
  3. BENZYDAMINE [Concomitant]
     Active Substance: BENZYDAMINE
     Indication: Prophylaxis
     Dosage: PRN
     Route: 065
     Dates: start: 20211210
  4. RAMIPRIL [Concomitant]
     Active Substance: RAMIPRIL
     Indication: Hypertension
     Route: 048
  5. CARBOCYSTEINE [Concomitant]
     Active Substance: CARBOCYSTEINE
     Indication: Chronic obstructive pulmonary disease
     Route: 048
     Dates: start: 20190807
  6. FLUTICASONE [Concomitant]
     Active Substance: FLUTICASONE
     Indication: Chronic obstructive pulmonary disease
     Route: 055
     Dates: start: 20190807
  7. GABAPENTIN [Concomitant]
     Active Substance: GABAPENTIN
     Indication: Back pain
     Route: 048
  8. GABAPENTIN [Concomitant]
     Active Substance: GABAPENTIN
     Indication: Intervertebral disc protrusion
  9. METFORMIN [Concomitant]
     Active Substance: METFORMIN HYDROCHLORIDE
     Indication: Type 2 diabetes mellitus
     Route: 048
  10. PENICILLIN V [Concomitant]
     Active Substance: PENICILLIN V
     Indication: Prophylaxis
     Route: 048
  11. ALBUTEROL [Concomitant]
     Active Substance: ALBUTEROL
     Indication: Dyspnoea
     Dosage: PRN
     Route: 055
  12. SALMETEROL [Concomitant]
     Active Substance: SALMETEROL
     Indication: Chronic obstructive pulmonary disease
     Route: 055
  13. SIMVASTATIN [Concomitant]
     Active Substance: SIMVASTATIN
     Indication: Prophylaxis
     Route: 048
  14. TRAMADOL [Concomitant]
     Active Substance: TRAMADOL
     Indication: Back pain
     Dosage: PRN
     Route: 048
  15. TRAMADOL [Concomitant]
     Active Substance: TRAMADOL
     Indication: Intervertebral disc protrusion
  16. ACYCLOVIR [Concomitant]
     Active Substance: ACYCLOVIR
     Indication: Prophylaxis
     Route: 048
     Dates: start: 20211210
  17. MAGNESIUM GLYCEROPHOSPHATE [Concomitant]
     Active Substance: MAGNESIUM GLYCEROPHOSPHATE
     Indication: Hypomagnesaemia
     Route: 048
     Dates: start: 20220110
  18. SITAGLIPTIN [Concomitant]
     Active Substance: SITAGLIPTIN
     Indication: Type 2 diabetes mellitus
     Route: 048
     Dates: start: 20211210
  19. Magnesium sulphate; Sodium chloride [Concomitant]
     Indication: Product used for unknown indication
     Route: 042
     Dates: start: 20221006, end: 20221006
  20. Magnesium sulphate; Sodium chloride [Concomitant]
     Route: 042
     Dates: start: 20221011, end: 20221011
  21. Magnesium sulphate; Sodium chloride [Concomitant]
     Route: 042
     Dates: start: 20221013, end: 20221013
  22. Magnesium sulphate; Sodium chloride [Concomitant]
     Route: 042
     Dates: start: 20220927, end: 20220927
  23. Potassium chloride; Sodium chloride [Concomitant]
     Indication: Product used for unknown indication
     Route: 042
     Dates: start: 20221013, end: 20221013
  24. Potassium chloride; Sodium chloride [Concomitant]
     Route: 042
     Dates: start: 20220927, end: 20220927
  25. POTASSIUM [Concomitant]
     Active Substance: POTASSIUM
     Indication: Product used for unknown indication
     Route: 065
     Dates: start: 20221011, end: 20221011
  26. POTASSIUM [Concomitant]
     Active Substance: POTASSIUM
     Route: 065
     Dates: start: 20221006, end: 20221006
  27. TIOTROPIUM [Concomitant]
     Active Substance: TIOTROPIUM
     Indication: Chronic obstructive pulmonary disease
     Route: 055

REACTIONS (1)
  - Pneumocystis jirovecii pneumonia [Recovered/Resolved]

NARRATIVE: CASE EVENT DATE: 20221013
